FAERS Safety Report 10013917 (Version 3)
Quarter: 2014Q2

REPORT INFORMATION
  Report Type: Spontaneous
  Country: CA (occurrence: CA)
  Receive Date: 20140316
  Receipt Date: 20140610
  Transmission Date: 20141212
  Serious: Yes (Death, Hospitalization)
  Sender: FDA-Public Use
  Company Number: CA-CELGENEUS-028-21880-13080655

PATIENT
  Age: 69 Year
  Sex: Male
  Weight: 72.1 kg

DRUGS (56)
  1. REVLIMID [Suspect]
     Indication: PLASMA CELL MYELOMA
     Route: 048
     Dates: start: 20120309
  2. REVLIMID [Suspect]
     Dosage: 10 MILLIGRAM
     Route: 048
     Dates: start: 20130627
  3. ELOTUZUMAB [Suspect]
     Indication: PLASMA CELL MYELOMA
     Route: 041
     Dates: start: 20120309
  4. DEXAMETHASONE [Suspect]
     Indication: PLASMA CELL MYELOMA
     Route: 048
     Dates: start: 20120309
  5. DEXAMETHASONE [Suspect]
     Route: 041
     Dates: start: 20120309
  6. DEXAMETHASONE [Suspect]
     Dosage: 8 MILLIGRAM
     Route: 041
     Dates: start: 20130627
  7. LENADEX [Suspect]
     Indication: PLASMA CELL MYELOMA
     Dosage: 28 MILLIGRAM
     Route: 048
     Dates: start: 20130627
  8. LENADEX [Suspect]
     Dosage: 40 MILLIGRAM
     Route: 048
     Dates: start: 20130627
  9. GRANULOCYTE COLONY-STIMULATING FACTOR NOS [Concomitant]
     Indication: ADVERSE EVENT
     Route: 065
     Dates: start: 20120323
  10. HYDROMORPHONE HCL [Concomitant]
     Indication: ADVERSE EVENT
     Route: 065
     Dates: start: 20120404
  11. HYDROMORPHONE HCL [Concomitant]
     Route: 065
     Dates: start: 20120819
  12. HYDROMORPHONE HCL [Concomitant]
     Route: 065
     Dates: start: 20120823, end: 20120827
  13. PAMIDRONATE [Concomitant]
     Indication: PRODUCT USED FOR UNKNOWN INDICATION
     Route: 065
     Dates: start: 201202
  14. ASA [Concomitant]
     Indication: PRODUCT USED FOR UNKNOWN INDICATION
     Route: 065
     Dates: start: 20120309, end: 20120330
  15. VANCOMYCIN [Concomitant]
     Indication: ADVERSE EVENT
     Route: 065
     Dates: start: 20120302, end: 20120317
  16. VANCOMYCIN [Concomitant]
     Route: 065
     Dates: start: 20120504, end: 20120619
  17. VANCOMYCIN [Concomitant]
     Route: 065
     Dates: start: 20120726, end: 20120804
  18. VANCOMYCIN [Concomitant]
     Route: 065
     Dates: start: 20120821, end: 20121021
  19. NORMAL SALINE [Concomitant]
     Indication: ADVERSE EVENT
     Route: 065
     Dates: start: 20120504, end: 20120517
  20. NORMAL SALINE [Concomitant]
     Route: 065
     Dates: start: 20120725, end: 20120725
  21. NORMAL SALINE [Concomitant]
     Route: 065
     Dates: start: 20120819, end: 20120819
  22. NORMAL SALINE [Concomitant]
     Route: 065
     Dates: start: 20120727, end: 20120727
  23. NORMAL SALINE [Concomitant]
     Route: 065
     Dates: start: 20130731, end: 20130810
  24. FRAGMIN [Concomitant]
     Indication: ADVERSE EVENT
     Route: 065
     Dates: start: 20120510
  25. FLAGYL [Concomitant]
     Indication: ADVERSE EVENT
     Route: 065
     Dates: start: 20120504, end: 20120511
  26. FLAGYL [Concomitant]
     Route: 065
     Dates: start: 20120821, end: 20120824
  27. CYCLOBENZAPRINE [Concomitant]
     Indication: ADVERSE EVENT
     Route: 065
     Dates: start: 20120710, end: 20120801
  28. FLOVENT [Concomitant]
     Indication: ADVERSE EVENT
     Route: 065
     Dates: start: 20120710, end: 20120801
  29. TYLENOL [Concomitant]
     Indication: ADVERSE EVENT
     Route: 065
     Dates: start: 20120725, end: 20120726
  30. LEVOFLOXACIN [Concomitant]
     Indication: ADVERSE EVENT
     Route: 065
     Dates: start: 20120819, end: 20120821
  31. LEVOFLOXACIN [Concomitant]
     Route: 065
     Dates: start: 20130315, end: 20130323
  32. POTASSIUM [Concomitant]
     Indication: ADVERSE EVENT
     Route: 065
     Dates: start: 20120820, end: 20120820
  33. METOPROLOL [Concomitant]
     Indication: ADVERSE EVENT
     Route: 065
     Dates: start: 20120830
  34. HYDROMORPH CONTIN [Concomitant]
     Indication: ADVERSE EVENT
     Route: 065
     Dates: start: 200803, end: 20120823
  35. HYDROMORPH CONTIN [Concomitant]
     Route: 065
     Dates: start: 20120827
  36. AZITHROMYCIN [Concomitant]
     Indication: ADVERSE EVENT
     Route: 065
     Dates: start: 20120822, end: 20120828
  37. CEFTRIAXONE [Concomitant]
     Indication: ADVERSE EVENT
     Route: 065
     Dates: start: 20120822, end: 20120827
  38. MAGNESIUM BOLUS [Concomitant]
     Indication: ADVERSE EVENT
     Route: 040
     Dates: start: 20120821, end: 20120821
  39. KCL [Concomitant]
     Indication: ADVERSE EVENT
     Route: 065
     Dates: start: 20120820, end: 20120820
  40. D5/0.5NS/KCL [Concomitant]
     Indication: ADVERSE EVENT
     Route: 065
     Dates: start: 20120820, end: 20120825
  41. MGSO4 [Concomitant]
     Indication: ADVERSE EVENT
     Route: 065
     Dates: start: 20120830, end: 20120830
  42. OXYGEN [Concomitant]
     Indication: ADVERSE EVENT
     Route: 065
     Dates: start: 20120820, end: 20120820
  43. CEPHALEXIN [Concomitant]
     Indication: PRODUCT USED FOR UNKNOWN INDICATION
     Route: 065
     Dates: start: 20120127, end: 20120307
  44. SENEKOT [Concomitant]
     Indication: PRODUCT USED FOR UNKNOWN INDICATION
     Route: 065
     Dates: start: 200803, end: 20120821
  45. SENNOSIDES [Concomitant]
     Indication: ADVERSE EVENT
     Route: 065
     Dates: start: 20130730, end: 20130810
  46. LACTULOSE [Concomitant]
     Indication: ADVERSE EVENT
     Route: 065
     Dates: start: 20130730, end: 20130810
  47. DILAUDID [Concomitant]
     Indication: ADVERSE EVENT
     Route: 065
     Dates: start: 20130730, end: 20130810
  48. K-TEN [Concomitant]
     Indication: ADVERSE EVENT
     Route: 065
     Dates: start: 20130802, end: 20130810
  49. QUETIAPINE [Concomitant]
     Indication: ADVERSE EVENT
     Route: 065
     Dates: start: 20130803, end: 20130810
  50. MG OXIDE [Concomitant]
     Indication: ADVERSE EVENT
     Route: 065
     Dates: start: 20130803, end: 20130810
  51. THIAMINE [Concomitant]
     Indication: ADVERSE EVENT
     Route: 065
     Dates: start: 20130805, end: 20130810
  52. CEFUROXIME [Concomitant]
     Indication: PRODUCT USED FOR UNKNOWN INDICATION
     Route: 065
     Dates: start: 20130805, end: 20130809
  53. MORPHINE [Concomitant]
     Indication: PRODUCT USED FOR UNKNOWN INDICATION
     Route: 065
     Dates: start: 20130809, end: 20130809
  54. HALOPERIDOL [Concomitant]
     Indication: PRODUCT USED FOR UNKNOWN INDICATION
     Route: 065
     Dates: start: 20130809, end: 20130809
  55. SCOPOLAMINE [Concomitant]
     Indication: PRODUCT USED FOR UNKNOWN INDICATION
     Route: 065
     Dates: start: 20130809, end: 20130810
  56. LORAZEPAM [Concomitant]
     Indication: ADVERSE EVENT
     Route: 065
     Dates: start: 20130809, end: 20130810

REACTIONS (2)
  - Plasma cell myeloma [Fatal]
  - Asthenia [Not Recovered/Not Resolved]
